FAERS Safety Report 23510682 (Version 1)
Quarter: 2024Q1

REPORT INFORMATION
  Report Type: Spontaneous
  Country: US (occurrence: US)
  Receive Date: 20240211
  Receipt Date: 20240211
  Transmission Date: 20240410
  Serious: No
  Sender: FDA-Public Use
  Company Number: US-AIMMUNE THERAPEUTICS, INC.-2023AIMT01459

PATIENT

DRUGS (4)
  1. PALFORZIA [Suspect]
     Active Substance: PEANUT
     Indication: Food allergy
     Dosage: IDE (0.5-6MG),  ONCE
     Route: 048
     Dates: start: 20231025, end: 20231025
  2. PALFORZIA [Suspect]
     Active Substance: PEANUT
     Dosage: IDE 6 MG, ONCE, LAST DOSE PRIOR TO EVENT
     Route: 048
     Dates: start: 20231025, end: 20231025
  3. SUMATRIPTAN [Concomitant]
     Active Substance: SUMATRIPTAN
     Indication: Migraine
     Dosage: 25 MG
     Dates: start: 2012
  4. KAITLIB FE [Concomitant]
     Active Substance: ETHINYL ESTRADIOL\NORETHINDRONE
     Indication: Muscle spasms

REACTIONS (1)
  - Nausea [Recovered/Resolved]

NARRATIVE: CASE EVENT DATE: 20231025
